FAERS Safety Report 9611839 (Version 3)
Quarter: 2014Q3

REPORT INFORMATION
  Report Type: Report from Study
  Country: JP (occurrence: JP)
  Receive Date: 20131010
  Receipt Date: 20140902
  Transmission Date: 20150326
  Serious: Yes (Hospitalization, Other)
  Sender: FDA-Public Use
  Company Number: PHHY2013JP113530

PATIENT
  Age: 75 Year
  Sex: Male
  Weight: 60 kg

DRUGS (2)
  1. TASIGNA [Suspect]
     Active Substance: NILOTINIB
     Indication: CHRONIC MYELOID LEUKAEMIA
     Dosage: 400 MG, DAILY
     Route: 048
     Dates: start: 20121211, end: 20130924
  2. PREDONINE [Suspect]
     Active Substance: PREDNISOLONE\PREDNISOLONE ACETATE\PREDNISOLONE SODIUM SUCCINATE
     Indication: RASH
     Dosage: 5 MG, DAILY
     Route: 048

REACTIONS (6)
  - Angina pectoris [Unknown]
  - Acute myocardial infarction [Unknown]
  - Chest pain [Unknown]
  - Chest discomfort [Unknown]
  - Myocardial infarction [Recovering/Resolving]
  - Blood creatine phosphokinase increased [Unknown]

NARRATIVE: CASE EVENT DATE: 20130901
